FAERS Safety Report 5326876-1 (Version None)
Quarter: 2007Q2

REPORT INFORMATION
  Report Type: 
  Country: None (occurrence: None)
  Receive Date: 20070511
  Receipt Date: 20070427
  Transmission Date: 20071010
  Serious: Yes (Death, Hospitalization)
  Sender: FDA-Public Use
  Company Number: FABR-11975

PATIENT
  Age: 55 Year
  Sex: Male

DRUGS (1)
  1. FABRAZYME [Suspect]
     Indication: FABRY'S DISEASE
     Dosage: 45 MG Q2WKS IV
     Route: 042
     Dates: start: 20040617, end: 20070417

REACTIONS (7)
  - ALTERED STATE OF CONSCIOUSNESS [None]
  - CARDIAC FAILURE CHRONIC [None]
  - GENERAL PHYSICAL HEALTH DETERIORATION [None]
  - HAEMODIALYSIS [None]
  - HYPOTENSION [None]
  - RENAL FAILURE CHRONIC [None]
  - SICK SINUS SYNDROME [None]
